FAERS Safety Report 25882276 (Version 2)
Quarter: 2025Q4

REPORT INFORMATION
  Report Type: Spontaneous
  Country: US (occurrence: US)
  Receive Date: 20251006
  Receipt Date: 20251106
  Transmission Date: 20260117
  Serious: No
  Sender: ROCHE
  Company Number: US-ROCHE-10000399967

PATIENT
  Age: 9 Year
  Sex: Male

DRUGS (1)
  1. HEMLIBRA [Suspect]
     Active Substance: EMICIZUMAB-KXWH
     Indication: Factor VIII deficiency
     Dosage: STRENGTH: 105MG/.7ML
     Route: 058
     Dates: start: 202502

REACTIONS (5)
  - Haemorrhage [Recovered/Resolved]
  - Fall [Unknown]
  - Soft tissue haemorrhage [Recovered/Resolved]
  - Joint injury [Unknown]
  - Arthropathy [Unknown]

NARRATIVE: CASE EVENT DATE: 20250830
